FAERS Safety Report 19907295 (Version 2)
Quarter: 2021Q4

REPORT INFORMATION
  Report Type: Spontaneous
  Country: US (occurrence: US)
  Receive Date: 20211001
  Receipt Date: 20211125
  Transmission Date: 20220303
  Serious: Yes (Other)
  Sender: FDA-Public Use
  Company Number: US-ABBVIE-21K-163-4072799-00

PATIENT
  Age: 71 Year
  Sex: Female
  Weight: 93.070 kg

DRUGS (2)
  1. HUMIRA [Suspect]
     Active Substance: ADALIMUMAB
     Indication: Crohn^s disease
     Route: 058
     Dates: start: 2019
  2. HUMIRA [Suspect]
     Active Substance: ADALIMUMAB
     Indication: Rheumatoid arthritis

REACTIONS (5)
  - Nervous system disorder [Unknown]
  - Injection site pain [Recovered/Resolved]
  - Needle issue [Unknown]
  - Needle issue [Unknown]
  - Spinal stenosis [Recovering/Resolving]

NARRATIVE: CASE EVENT DATE: 20210907
